FAERS Safety Report 15298487 (Version 5)
Quarter: 2018Q3

REPORT INFORMATION
  Report Type: Spontaneous
  Country: US (occurrence: US)
  Receive Date: 20180820
  Receipt Date: 20180907
  Transmission Date: 20181010
  Serious: Yes (Other)
  Sender: FDA-Public Use
  Company Number: US-CELGENEUS-USA-20180804415

PATIENT
  Age: 69 Year
  Sex: Male

DRUGS (3)
  1. NBUVB [Concomitant]
     Indication: PRODUCT USED FOR UNKNOWN INDICATION
     Route: 065
     Dates: start: 20180116, end: 20180417
  2. OTEZLA [Suspect]
     Active Substance: APREMILAST
     Indication: PSORIASIS
     Dosage: 60 MILLIGRAM
     Route: 048
     Dates: start: 20180308
  3. OTEZLA [Suspect]
     Active Substance: APREMILAST
     Indication: ERYTHRODERMIC PSORIASIS
     Dosage: 30 MILLIGRAM
     Route: 048
     Dates: start: 20180317

REACTIONS (5)
  - Contusion [Recovering/Resolving]
  - Platelet count decreased [Unknown]
  - Diarrhoea [Recovered/Resolved]
  - Squamous cell carcinoma [Recovered/Resolved]
  - Weight decreased [Recovering/Resolving]

NARRATIVE: CASE EVENT DATE: 201803
